FAERS Safety Report 5892189-2 (Version None)
Quarter: 2008Q3

REPORT INFORMATION
  Report Type: 
  Country: None (occurrence: None)
  Receive Date: 20080922
  Receipt Date: 20080915
  Transmission Date: 20090109
  Serious: Yes (Hospitalization)
  Sender: FDA-Public Use
  Company Number: DE-AMGEN-UK307550

PATIENT
  Sex: Male
  Weight: 75 kg

DRUGS (6)
  1. VECTIBIX [Suspect]
     Indication: COLORECTAL CANCER
     Route: 042
     Dates: start: 20080902, end: 20080902
  2. LACTULOSE [Concomitant]
     Route: 048
  3. PANTOZOL [Concomitant]
     Route: 048
  4. METOPROLOL SUCCINATE [Concomitant]
     Route: 048
  5. PALLADONE [Concomitant]
     Route: 048
  6. FORMOTEROL FUMARATE [Concomitant]
     Route: 055

REACTIONS (3)
  - CONJUNCTIVITIS [None]
  - RASH [None]
  - VISUAL IMPAIRMENT [None]
